FAERS Safety Report 16599941 (Version 1)
Quarter: 2019Q3

REPORT INFORMATION
  Report Type: Spontaneous
  Country: BE (occurrence: BE)
  Receive Date: 20190720
  Receipt Date: 20190720
  Transmission Date: 20191004
  Serious: Yes (Life-Threatening, Hospitalization, Other)
  Sender: FDA-Public Use
  Company Number: BE-ACCORD-139140

PATIENT
  Age: 43 Year
  Sex: Female

DRUGS (9)
  1. MYCOPHENOLIC ACID. [Suspect]
     Active Substance: MYCOPHENOLIC ACID
     Indication: IMMUNOSUPPRESSANT DRUG THERAPY
     Dosage: 2X500 MG/DAY, DECREASED
  2. BASILIXIMAB [Suspect]
     Active Substance: BASILIXIMAB
     Indication: IMMUNOSUPPRESSANT DRUG THERAPY
     Dosage: INDUCTION
  3. CIDOFOVIR. [Suspect]
     Active Substance: CIDOFOVIR
     Indication: NEPHROPATHY
  4. CIDOFOVIR. [Suspect]
     Active Substance: CIDOFOVIR
     Indication: NEPHROPATHY
  5. CIDOFOVIR. [Suspect]
     Active Substance: CIDOFOVIR
     Indication: NEPHROPATHY
  6. VALGANCICLOVIR/VALGANCICLOVIR HYDROCHLORIDE [Concomitant]
     Indication: ANTIVIRAL PROPHYLAXIS
  7. TACROLIMUS. [Suspect]
     Active Substance: TACROLIMUS
     Indication: IMMUNOSUPPRESSANT DRUG THERAPY
  8. METHYLPREDNISOLONE. [Suspect]
     Active Substance: METHYLPREDNISOLONE
     Indication: IMMUNOSUPPRESSANT DRUG THERAPY
     Dosage: LOW-DOSE METHYLPREDNISOLONE
  9. MYCOPHENOLATE MOFETIL. [Suspect]
     Active Substance: MYCOPHENOLATE MOFETIL
     Indication: IMMUNOSUPPRESSANT DRUG THERAPY

REACTIONS (7)
  - Transplant rejection [Recovered/Resolved]
  - Gastric disorder [Unknown]
  - Hepatic function abnormal [Recovering/Resolving]
  - Viral uveitis [Recovered/Resolved]
  - Thrombocytopenia [Unknown]
  - Cytomegalovirus infection [Recovered/Resolved]
  - Nephropathy [Recovered/Resolved]
